FAERS Safety Report 9298499 (Version 1)
Quarter: 2013Q2

REPORT INFORMATION
  Report Type: Spontaneous
  Country: US (occurrence: US)
  Receive Date: 20130520
  Receipt Date: 20130520
  Transmission Date: 20140414
  Serious: Yes (Other)
  Sender: FDA-Public Use
  Company Number: US-SHIRE-ALL1-2011-00953

PATIENT
  Sex: Female

DRUGS (1)
  1. VYVANSE [Suspect]
     Indication: PRODUCT USED FOR UNKNOWN INDICATION
     Dosage: 60 MG, 1X/DAY:QD
     Route: 048

REACTIONS (6)
  - Alopecia [Recovering/Resolving]
  - Skin disorder [Recovering/Resolving]
  - Social problem [Recovering/Resolving]
  - Rash [Recovering/Resolving]
  - Depressed mood [Recovering/Resolving]
  - Drug effect increased [Recovered/Resolved]
